FAERS Safety Report 25104739 (Version 1)
Quarter: 2025Q1

REPORT INFORMATION
  Report Type: Spontaneous
  Country: US (occurrence: None)
  Receive Date: 20250320
  Receipt Date: 20250320
  Transmission Date: 20250409
  Serious: Yes (Hospitalization)
  Sender: FDA-CTU
  Company Number: None

PATIENT
  Age: 77 Year
  Sex: Female
  Weight: 94 kg

DRUGS (7)
  1. MOUNJARO [Suspect]
     Active Substance: TIRZEPATIDE
     Indication: Diabetes mellitus
     Dates: start: 20241224
  2. SPIRONOLACTONE [Concomitant]
     Active Substance: SPIRONOLACTONE
  3. FUROSEMIDE [Concomitant]
     Active Substance: FUROSEMIDE
  4. LOSARTAN [Concomitant]
     Active Substance: LOSARTAN
  5. HYDROXYZINE [Concomitant]
     Active Substance: HYDROXYZINE HYDROCHLORIDE
  6. HYDROCHLOROTHIAZIDE [Concomitant]
     Active Substance: HYDROCHLOROTHIAZIDE
  7. TRAMADOL [Concomitant]
     Active Substance: TRAMADOL

REACTIONS (1)
  - Bile duct stone [None]

NARRATIVE: CASE EVENT DATE: 20250318
